FAERS Safety Report 6057699-6 (Version None)
Quarter: 2009Q1

REPORT INFORMATION
  Report Type: 
  Country: None (occurrence: None)
  Receive Date: 20090129
  Receipt Date: 20090120
  Transmission Date: 20090719
  Serious: Yes (Life-Threatening, Hospitalization)
  Sender: FDA-Public Use
  Company Number: US-PFIZER INC-2009157930

PATIENT
  Age: 64 Year
  Sex: Female
  Weight: 72.562 kg

DRUGS (14)
  1. CELEBREX [Suspect]
     Indication: RENAL CANCER
     Dosage: 400 MG, 2X/DAY
     Dates: start: 20071117, end: 20080710
  2. INTERFERON ALFA-2B [Suspect]
     Indication: RENAL CANCER
     Dosage: 4 MILLIONIU, 1X/DAY
     Dates: start: 20071117, end: 20080710
  3. KEPPRA [Concomitant]
     Dosage: UNK
  4. ZOFRAN [Concomitant]
     Dosage: UNK
  5. ATARAX [Concomitant]
     Dosage: UNK
  6. ALL OTHER THERAPEUTIC PRODUCTS [Concomitant]
     Dosage: UNK
  7. COZAAR [Concomitant]
     Dosage: UNK
  8. COMPAZINE [Concomitant]
     Dosage: UNK
  9. PREVACID [Concomitant]
     Dosage: UNK
  10. XANAX [Concomitant]
     Dosage: UNK
  11. ADVAIR DISKUS 100/50 [Concomitant]
     Dosage: UNK
  12. ALBUTEROL SULATE [Concomitant]
     Dosage: UNK
  13. MECLIZINE [Concomitant]
     Dosage: UNK
  14. TUSSIN DM [Concomitant]
     Dosage: UNK

REACTIONS (1)
  - CONVULSION [None]
